FAERS Safety Report 9247633 (Version 1)
Quarter: 2013Q1

REPORT INFORMATION
  Report Type: Spontaneous
  Country: US (occurrence: None)
  Receive Date: 20130305
  Receipt Date: 20130305
  Transmission Date: 20140127
  Serious: Yes (Disabling)
  Sender: FDA-Public Use
  Company Number: 163-21880-12092447

PATIENT
  Age: 70 Year
  Sex: Male

DRUGS (6)
  1. REVLIMID [Suspect]
     Indication: PLASMA CELL MYELOMA
     Dosage: 14 IN 21 D
     Route: 048
     Dates: start: 20110928
  2. SIMVASTATIN [Concomitant]
  3. ACYCLOVIR (ACICLOVIR) [Concomitant]
  4. AMITRIPTYLINE (AMITRIPTYLINE) [Concomitant]
  5. CYCLOBENZAPRINE [Concomitant]
  6. METFORMIN [Concomitant]

REACTIONS (1)
  - Neuropathy peripheral [None]
